FAERS Safety Report 9420600 (Version 1)
Quarter: 2013Q3

REPORT INFORMATION
  Report Type: Spontaneous
  Country: US (occurrence: US)
  Receive Date: 20130725
  Receipt Date: 20130725
  Transmission Date: 20140515
  Serious: No
  Sender: FDA-Public Use
  Company Number: US-ABBOTT-13P-163-1105510-00

PATIENT
  Age: 36 Year
  Sex: Female
  Weight: 55.84 kg

DRUGS (2)
  1. SYNTHROID [Suspect]
     Indication: HYPOTHYROIDISM
     Route: 048
     Dates: start: 2004, end: 201301
  2. SYNTHROID [Suspect]
     Route: 048
     Dates: start: 20130523

REACTIONS (4)
  - Arthralgia [Not Recovered/Not Resolved]
  - Myalgia [Not Recovered/Not Resolved]
  - Psoriatic arthropathy [Recovered/Resolved]
  - Muscular weakness [Not Recovered/Not Resolved]
